FAERS Safety Report 5936287-3 (Version None)
Quarter: 2008Q4

REPORT INFORMATION
  Report Type: 
  Country: None (occurrence: None)
  Receive Date: 20081030
  Receipt Date: 20081024
  Transmission Date: 20090506
  Serious: Yes (Other)
  Sender: FDA-Public Use
  Company Number: US-JNJCH-2008053120

PATIENT
  Age: 10 Year
  Sex: Female
  Weight: 29 kg

DRUGS (1)
  1. CHILDREN'S ZYRTEC ALLERGY CHEWABLES [Suspect]
     Indication: HYPERSENSITIVITY
     Route: 048

REACTIONS (1)
  - CONVULSION [None]
